FAERS Safety Report 13218938 (Version 2)
Quarter: 2017Q1

REPORT INFORMATION
  Report Type: Spontaneous
  Country: KR (occurrence: KR)
  Receive Date: 20170210
  Receipt Date: 20170315
  Transmission Date: 20170428
  Serious: Yes (Hospitalization)
  Sender: FDA-Public Use
  Company Number: KR-009507513-1702KOR004647

PATIENT
  Age: 82 Year
  Sex: Male
  Weight: 52 kg

DRUGS (41)
  1. EMEND (FOSAPREPITANT DIMEGLUMINE) [Suspect]
     Active Substance: FOSAPREPITANT DIMEGLUMINE
     Dosage: 150 MG, ONCE
     Route: 042
     Dates: start: 20161102, end: 20161102
  2. ATROVENT [Concomitant]
     Active Substance: IPRATROPIUM BROMIDE
     Indication: COUGH
     Dosage: 4 DF (A), QD (ROUTE OF ADMINISTRATION: INHALATION)
     Route: 055
     Dates: start: 20160929, end: 20161004
  3. TARGIN [Concomitant]
     Active Substance: NALOXONE HYDROCHLORIDE\OXYCODONE HYDROCHLORIDE
     Indication: PAIN
     Dosage: 1 TABLET, BID
     Route: 048
     Dates: start: 20161005, end: 20161125
  4. PANTOLINE TABLETS [Concomitant]
     Indication: PROPHYLAXIS
     Dosage: 1 TABLET, QD
     Route: 048
     Dates: start: 20161011
  5. DOXORUBICIN HYDROCHLORIDE. [Concomitant]
     Active Substance: DOXORUBICIN HYDROCHLORIDE
     Indication: DIFFUSE LARGE B-CELL LYMPHOMA
     Dosage: 76 MG, ONCE (CYCLE 1)
     Route: 042
     Dates: start: 20161011, end: 20161011
  6. CODAEWON FORTE [Concomitant]
     Indication: COUGH
     Dosage: 1 DF (PK), TID
     Route: 048
     Dates: start: 20161005, end: 20161013
  7. DENOGAN [Concomitant]
     Active Substance: PROPACETAMOL HYDROCHLORIDE
     Indication: PAIN
     Dosage: 1 DF (V), ONCE
     Route: 042
     Dates: start: 20161002, end: 20161002
  8. DENOGAN [Concomitant]
     Active Substance: PROPACETAMOL HYDROCHLORIDE
     Dosage: 1 DF (V), ONCE
     Route: 042
     Dates: start: 20161004, end: 20161004
  9. TRIDOL (TRAMADOL HYDROCHLORIDE) [Concomitant]
     Indication: PROPHYLAXIS
     Dosage: 50 MG, ONCE (STRENGTH: 50 MG/ML)
     Route: 042
     Dates: start: 20161003, end: 20161003
  10. DUPHALAC [Concomitant]
     Active Substance: LACTULOSE
     Dosage: 10 ML, TID
     Route: 048
     Dates: start: 20161011, end: 20161011
  11. MEGACE F [Concomitant]
     Indication: DECREASED APPETITE
     Dosage: 1 DF (PK), QD
     Route: 048
     Dates: start: 20161005, end: 20161018
  12. MABTHERA [Concomitant]
     Active Substance: RITUXIMAB
     Indication: DIFFUSE LARGE B-CELL LYMPHOMA
     Dosage: 600 MG, ONCE (CYCLE 1)
     Route: 042
     Dates: start: 20161011, end: 20161011
  13. SOLONDO [Concomitant]
     Active Substance: PREDNISOLONE
     Indication: PREMEDICATION
     Dosage: 8 TABLETS, TID
     Route: 048
     Dates: start: 20161009, end: 20161013
  14. ALOXI [Concomitant]
     Active Substance: PALONOSETRON HYDROCHLORIDE
     Indication: PREMEDICATION
     Dosage: 0.25 ML, ONCE
     Route: 042
     Dates: start: 20161011, end: 20161011
  15. ALBIS [Concomitant]
     Active Substance: BISMUTH SUBCITRATE\RANITIDINE HYDROCHLORIDE\SUCRALFATE
     Indication: PROPHYLAXIS
     Dosage: 1 TABLET, BID
     Route: 048
     Dates: start: 20160929, end: 20161010
  16. HEXAMEDINE [Concomitant]
     Indication: MOUTH ULCERATION
     Dosage: 1 BOTTLE (BTL), QD (ROUTE OF ADMINISTRATION: GARGLE)
     Dates: start: 20160930
  17. ENDIS [Concomitant]
     Indication: COUGH
     Dosage: 1 CAPSULE, BID
     Route: 048
     Dates: start: 201609
  18. PETHIDINE HCL JEIL [Concomitant]
     Dosage: 25 MG, ONCE  (STRENGTH: 25 MG/0.5 ML)
     Route: 030
     Dates: start: 20161003, end: 20161003
  19. IRCODON [Concomitant]
     Indication: PAIN
     Dosage: 1 TABLET, QID
     Route: 048
     Dates: start: 20161003, end: 20161003
  20. THEOLAN B SR [Concomitant]
     Indication: COUGH
     Dosage: 1 CAPSULE, BID
     Route: 048
     Dates: start: 201609, end: 20161013
  21. EMEND (FOSAPREPITANT DIMEGLUMINE) [Suspect]
     Active Substance: FOSAPREPITANT DIMEGLUMINE
     Indication: PROPHYLAXIS OF NAUSEA AND VOMITING
     Dosage: 150 MG, ONCE
     Route: 042
     Dates: start: 20161011, end: 20161011
  22. MEDILAC-DS [Concomitant]
     Indication: PROPHYLAXIS
     Dosage: 1 CAPSULE, TID
     Route: 048
     Dates: start: 201609, end: 20161018
  23. ENDIS [Concomitant]
     Indication: PRODUCTIVE COUGH
  24. ATROVENT [Concomitant]
     Active Substance: IPRATROPIUM BROMIDE
     Indication: PRODUCTIVE COUGH
  25. THEOLAN B SR [Concomitant]
     Indication: PRODUCTIVE COUGH
  26. ENDOXAN [Concomitant]
     Active Substance: CYCLOPHOSPHAMIDE
     Indication: DIFFUSE LARGE B-CELL LYMPHOMA
     Dosage: 1150 MG, ONCE (CYCLE 1)
     Route: 042
     Dates: start: 20161011, end: 20161011
  27. ACTIFED (PSEUDOEPHEDRINE HYDROCHLORIDE (+) TRIPROLIDINE HYDROCHLORIDE) [Concomitant]
     Indication: PROPHYLAXIS
     Dosage: 60 MG, BID
     Route: 048
     Dates: start: 20160930, end: 20161002
  28. ACTIFED (PSEUDOEPHEDRINE HYDROCHLORIDE (+) TRIPROLIDINE HYDROCHLORIDE) [Concomitant]
     Dosage: 30 MG, BID
     Route: 048
     Dates: start: 20161003, end: 20161010
  29. DUPHALAC [Concomitant]
     Active Substance: LACTULOSE
     Indication: CONSTIPATION
     Dosage: 15 ML, BID
     Route: 048
     Dates: start: 20160930, end: 20161006
  30. MAGO [Concomitant]
     Indication: CONSTIPATION
     Dosage: 1 TABLET, TID
     Route: 048
     Dates: start: 201609, end: 20160930
  31. MAGO [Concomitant]
     Dosage: 1 TABLET, TID
     Route: 048
     Dates: start: 20161007, end: 20161010
  32. VENTOLIN [Concomitant]
     Active Substance: ALBUTEROL SULFATE
     Indication: PNEUMONIA
     Dosage: 10 MG, QD ( ROUTE: INHALATION)
     Route: 055
     Dates: start: 20160929, end: 20161004
  33. EMEND (FOSAPREPITANT DIMEGLUMINE) [Suspect]
     Active Substance: FOSAPREPITANT DIMEGLUMINE
     Dosage: 150 MG, ONCE
     Route: 042
     Dates: start: 20161126, end: 20161126
  34. EMEND (FOSAPREPITANT DIMEGLUMINE) [Suspect]
     Active Substance: FOSAPREPITANT DIMEGLUMINE
     Dosage: 150 MG, ONCE
     Route: 042
     Dates: start: 20161224, end: 20161224
  35. CETIRIN [Concomitant]
     Indication: PROPHYLAXIS
     Dosage: 1 TABLET, QD
     Route: 048
     Dates: start: 20160930, end: 20161002
  36. PENIRAMIN [Concomitant]
     Indication: PROPHYLAXIS
     Dosage: 4 MG, ONCE
     Route: 042
     Dates: start: 20161011, end: 20161011
  37. PETHIDINE HCL JEIL [Concomitant]
     Indication: PAIN
     Dosage: 25 MG, ONCE (STRENGTH: 25 MG/0.5 ML)
     Route: 030
     Dates: start: 20160929, end: 20160929
  38. CODAEWON FORTE [Concomitant]
     Indication: PRODUCTIVE COUGH
  39. TABAXIN [Concomitant]
     Indication: PNEUMONIA
     Dosage: 4.5 G, TID
     Route: 042
     Dates: start: 20161004, end: 20161017
  40. SYLCON [Concomitant]
     Indication: PROPHYLAXIS
     Dosage: 1 TABLET, BID
     Route: 048
     Dates: start: 201609, end: 20160930
  41. SYLCON [Concomitant]
     Dosage: 2 TABLETS, TID
     Route: 048
     Dates: start: 20161005

REACTIONS (2)
  - Liver function test increased [Recovered/Resolved]
  - Pleural effusion [Recovered/Resolved]

NARRATIVE: CASE EVENT DATE: 20161013
